FAERS Safety Report 21043455 (Version 1)
Quarter: 2022Q3

REPORT INFORMATION
  Report Type: Spontaneous
  Country: US (occurrence: US)
  Receive Date: 20220705
  Receipt Date: 20220705
  Transmission Date: 20221027
  Serious: No
  Sender: FDA-Public Use
  Company Number: US-SAREPTA THERAPEUTICS INC.-SRP2021-001783

PATIENT
  Age: 9 Year
  Sex: Male
  Weight: 60 kg

DRUGS (8)
  1. EXONDYS 51 [Suspect]
     Active Substance: ETEPLIRSEN
     Indication: Duchenne muscular dystrophy
     Dosage: 1800 MILLIGRAM, WEEKLY
     Route: 042
     Dates: start: 20180226, end: 20211027
  2. EXONDYS 51 [Suspect]
     Active Substance: ETEPLIRSEN
     Dosage: 1800 MILLIGRAM, WEEKLY
     Route: 042
     Dates: start: 20211031
  3. VITAMIN D NOS [Concomitant]
     Active Substance: VITAMIN D NOS
     Indication: Vitamin supplementation
     Dosage: 1000 INTERNATIONAL UNIT, QD
     Route: 048
     Dates: start: 20211013
  4. VITAMIN D NOS [Concomitant]
     Active Substance: VITAMIN D NOS
     Dosage: 1000 INTERNATIONAL UNIT, QD
     Route: 048
     Dates: start: 20201013
  5. ENALAPRIL MALEATE [Concomitant]
     Active Substance: ENALAPRIL MALEATE
     Indication: Cardiovascular event prophylaxis
     Dosage: 5 MILLIGRAM, BID
     Route: 048
     Dates: start: 20201013
  6. CATHFLO ACTIVASE [Concomitant]
     Active Substance: ALTEPLASE
     Indication: Catheter management
     Dosage: 2 MILLIGRAM IVC AS DIRECTED
     Route: 042
     Dates: start: 20210121
  7. LMX 4 [Concomitant]
     Indication: Local anaesthesia
     Dosage: 1 GRAM, PRN
     Route: 061
     Dates: start: 20210511
  8. EMFLAZA [Concomitant]
     Active Substance: DEFLAZACORT
     Indication: Muscular weakness
     Dosage: 36 MILLIGRAM, DAILY EVERY SATURDAY AND SUNDAY
     Route: 048
     Dates: start: 20210612

REACTIONS (2)
  - Device issue [Unknown]
  - No adverse event [Unknown]

NARRATIVE: CASE EVENT DATE: 20211027
